FAERS Safety Report 6329091-8 (Version None)
Quarter: 2009Q3

REPORT INFORMATION
  Report Type: 
  Country: None (occurrence: None)
  Receive Date: 20090826
  Receipt Date: 20090816
  Transmission Date: 20100115
  Serious: Yes (Death)
  Sender: FDA-Public Use
  Company Number: IL-ROCHE-650473

PATIENT
  Age: 50 Year
  Sex: Male

DRUGS (1)
  1. TAMIFLU [Suspect]
     Dosage: START DATE JUL/AUG 2009 AND STOP DATE JUL/AUG 2009
     Route: 048

REACTIONS (1)
  - PNEUMONIA [None]
